FAERS Safety Report 4755515-3 (Version None)
Quarter: 2005Q3

REPORT INFORMATION
  Report Type: 
  Country: None (occurrence: None)
  Receive Date: 20050830
  Receipt Date: 20050502
  Transmission Date: 20060218
  Serious: No
  Sender: FDA-Public Use
  Company Number: US-BRISTOL-MYERS SQUIBB COMPANY-12953519

PATIENT
  Age: 46 Year
  Sex: Female

DRUGS (4)
  1. ABILIFY [Suspect]
     Indication: DEPRESSION
     Dosage: DECREASED TO 10 MG/DAY ON 31-MAR-2005.
     Route: 048
     Dates: start: 20050309
  2. ABILIFY [Suspect]
     Indication: BIPOLAR DISORDER
     Dosage: DECREASED TO 10 MG/DAY ON 31-MAR-2005.
     Route: 048
     Dates: start: 20050309
  3. ZOLOFT [Concomitant]
     Dosage: INCREASED TO 200 MG/DAY ON 08-MAY-2005.
  4. DEPAKOTE [Concomitant]

REACTIONS (4)
  - DYSPNOEA [None]
  - MALAISE [None]
  - VISION BLURRED [None]
  - WEIGHT INCREASED [None]
